FAERS Safety Report 18026012 (Version 2)
Quarter: 2020Q3

REPORT INFORMATION
  Report Type: Spontaneous
  Country: US (occurrence: US)
  Receive Date: 20200715
  Receipt Date: 20200723
  Transmission Date: 20201103
  Serious: No
  Sender: FDA-Public Use
  Company Number: US-ASTRAZENECA-2020SE78223

PATIENT
  Age: 66 Year
  Sex: Female

DRUGS (1)
  1. BEVESPI AEROSPHERE [Suspect]
     Active Substance: FORMOTEROL FUMARATE\GLYCOPYRROLATE
     Indication: PRODUCT USED FOR UNKNOWN INDICATION
     Dosage: 2 PUFFS TWICE EACH DAY
     Route: 055

REACTIONS (7)
  - Intentional device misuse [Recovered/Resolved]
  - Intentional product misuse [Recovered/Resolved]
  - Candida infection [Recovered/Resolved]
  - Arthralgia [Unknown]
  - Device delivery system issue [Unknown]
  - Wrong technique in device usage process [Recovered/Resolved]
  - Drug ineffective [Recovered/Resolved]

NARRATIVE: CASE EVENT DATE: 2019
